FAERS Safety Report 7194992-8 (Version None)
Quarter: 2010Q4

REPORT INFORMATION
  Report Type: 
  Country: None (occurrence: None)
  Receive Date: 20101223
  Receipt Date: 20100922
  Transmission Date: 20110411
  Serious: No
  Sender: FDA-Public Use
  Company Number: US-AMGEN-KDL440120

PATIENT

DRUGS (13)
  1. ENBREL [Suspect]
     Indication: PRODUCT USED FOR UNKNOWN INDICATION
     Dosage: 50 MG, QWK
     Route: 058
  2. DICLOFENAC SODIUM [Concomitant]
  3. HYDROXYCHLOROQUINE [Concomitant]
  4. HYDROXYCHLOROQUINE SULFATE [Concomitant]
     Dosage: 200 MG, UNK
  5. METHOTREXATE [Concomitant]
  6. FOLIC ACID [Concomitant]
     Dosage: 1 MG, UNK
  7. CELEXA [Concomitant]
     Dosage: 10 MG, UNK
  8. ERGOCALCIFEROL [Concomitant]
  9. STEROID ANTIBACTERIALS [Concomitant]
  10. CALCIUM [Concomitant]
  11. HERBAL SUPPLEMENT [Concomitant]
  12. FLAX SEED OIL [Concomitant]
  13. MULTI-VITAMINS [Concomitant]

REACTIONS (4)
  - INJECTION SITE HAEMATOMA [None]
  - INJECTION SITE PRURITUS [None]
  - INJECTION SITE REACTION [None]
  - INJECTION SITE SWELLING [None]
